FAERS Safety Report 26125596 (Version 1)
Quarter: 2025Q4

REPORT INFORMATION
  Report Type: Spontaneous
  Country: EU (occurrence: EU)
  Receive Date: 20251205
  Receipt Date: 20251205
  Transmission Date: 20260117
  Serious: Yes (Other)
  Sender: CHEPLAPHARM
  Company Number: EU-CHEPLA-2025013726

PATIENT
  Sex: Female

DRUGS (1)
  1. CAPECITABINE [Suspect]
     Active Substance: CAPECITABINE
     Indication: Colon cancer
     Dosage: ^ABOUT 25 YEARS AGO^

REACTIONS (4)
  - Malignant melanoma [Unknown]
  - Uterine cancer [Unknown]
  - Lung cancer metastatic [Unknown]
  - Second primary malignancy [Unknown]
